FAERS Safety Report 7719229-X (Version None)
Quarter: 2011Q3

REPORT INFORMATION
  Report Type: 
  Country: None (occurrence: None)
  Receive Date: 20110830
  Receipt Date: 20110818
  Transmission Date: 20111222
  Serious: Yes (Other)
  Sender: FDA-Public Use
  Company Number: US-UCBSA-039566

PATIENT
  Sex: Female

DRUGS (2)
  1. VIMPAT [Suspect]
  2. VIMPAT [Suspect]
     Dosage: PREVIOUS DOSE: UNKNOWN DOSE, SINCE ??-NOV-2010

REACTIONS (6)
  - MUSCLE SPASMS [None]
  - HALLUCINATION [None]
  - MUSCULOSKELETAL STIFFNESS [None]
  - HYPOAESTHESIA [None]
  - SENSATION OF HEAVINESS [None]
  - BALANCE DISORDER [None]
